FAERS Safety Report 11685851 (Version 2)
Quarter: 2015Q4

REPORT INFORMATION
  Report Type: Report from Study
  Country: US (occurrence: US)
  Receive Date: 20151030
  Receipt Date: 20151110
  Transmission Date: 20160304
  Serious: No
  Sender: FDA-Public Use
  Company Number: US-AMGEN-USASL2015112804

PATIENT
  Age: 31 Year
  Sex: Female

DRUGS (1)
  1. ENBREL [Suspect]
     Active Substance: ETANERCEPT
     Indication: RHEUMATOID ARTHRITIS
     Dosage: 50 MG, QWK
     Route: 065
     Dates: start: 201508

REACTIONS (5)
  - Injection site mass [Unknown]
  - Injection site reaction [Unknown]
  - Injection site pruritus [Unknown]
  - Nasopharyngitis [Unknown]
  - Bronchitis [Unknown]

NARRATIVE: CASE EVENT DATE: 20150905
